FAERS Safety Report 8080104-5 (Version None)
Quarter: 2012Q1

REPORT INFORMATION
  Report Type: 
  Country: None (occurrence: None)
  Receive Date: 20120129
  Receipt Date: 20111027
  Transmission Date: 20120608
  Serious: No
  Sender: FDA-Public Use
  Company Number: US-ABBOTT-11P-163-0869450-00

PATIENT
  Sex: Female

DRUGS (6)
  1. VITAMIN TAB [Concomitant]
     Indication: PRODUCT USED FOR UNKNOWN INDICATION
  2. IRON [Concomitant]
     Indication: PRODUCT USED FOR UNKNOWN INDICATION
     Dosage: DAILY
  3. INFLUENZA VIRUS VACCINE [Suspect]
     Indication: ANTIVIRAL PROPHYLAXIS
     Dates: start: 20111001, end: 20111001
  4. CRANBERRY [Concomitant]
     Indication: PRODUCT USED FOR UNKNOWN INDICATION
  5. EFFEXOR [Concomitant]
     Indication: PRODUCT USED FOR UNKNOWN INDICATION
  6. HUMIRA [Suspect]
     Indication: PSORIASIS
     Dates: start: 20110617

REACTIONS (9)
  - APHONIA [None]
  - UPPER-AIRWAY COUGH SYNDROME [None]
  - SPUTUM DISCOLOURED [None]
  - NASOPHARYNGITIS [None]
  - RESPIRATORY TRACT CONGESTION [None]
  - BACK PAIN [None]
  - PRODUCTIVE COUGH [None]
  - INFLUENZA LIKE ILLNESS [None]
  - CHEST DISCOMFORT [None]
